FAERS Safety Report 24923649 (Version 1)
Quarter: 2025Q1

REPORT INFORMATION
  Report Type: Spontaneous
  Country: GB (occurrence: GB)
  Receive Date: 20250204
  Receipt Date: 20250204
  Transmission Date: 20250409
  Serious: Yes (Other)
  Sender: ROCHE
  Company Number: GB-ROCHE-10000192054

PATIENT
  Age: 13 Year
  Sex: Male
  Weight: 11.4 kg

DRUGS (2)
  1. HEMLIBRA [Suspect]
     Active Substance: EMICIZUMAB-KXWH
     Indication: Factor VIII deficiency
     Route: 065
     Dates: start: 202211
  2. FLUOXETINE HYDROCHLORIDE [Concomitant]
     Active Substance: FLUOXETINE HYDROCHLORIDE
     Indication: Depression
     Dates: start: 2020

REACTIONS (3)
  - Therapeutic product effect decreased [Unknown]
  - Haemorrhage [Not Recovered/Not Resolved]
  - Injury [Not Recovered/Not Resolved]
